FAERS Safety Report 24372248 (Version 1)
Quarter: 2024Q3

REPORT INFORMATION
  Report Type: Spontaneous
  Country: MX (occurrence: MX)
  Receive Date: 20240927
  Receipt Date: 20240927
  Transmission Date: 20241017
  Serious: Yes (Other)
  Sender: BAYER
  Company Number: MX-BAYER-2024A137821

PATIENT

DRUGS (1)
  1. ULTRAVIST [Suspect]
     Active Substance: IOPROMIDE
     Dosage: 100 ML

REACTIONS (8)
  - Cardio-respiratory arrest [None]
  - Anaphylactic shock [None]
  - Face oedema [None]
  - Obstructive airways disorder [None]
  - Tongue oedema [None]
  - Cyanosis [None]
  - Dyspnoea [None]
  - Tachycardia [None]

NARRATIVE: CASE EVENT DATE: 20240921
